FAERS Safety Report 9837553 (Version 2)
Quarter: 2014Q1

REPORT INFORMATION
  Report Type: Report from Study
  Country: US (occurrence: US)
  Receive Date: 20140123
  Receipt Date: 20140217
  Transmission Date: 20141002
  Serious: Yes (Hospitalization)
  Sender: FDA-Public Use
  Company Number: PHHY2014US006434

PATIENT
  Age: 60 Year
  Sex: Male

DRUGS (6)
  1. AFINITOR [Suspect]
     Indication: HODGKIN^S DISEASE
     Dosage: 2.5 MG, DAILY
  2. RITUXIMAB [Suspect]
     Indication: HODGKIN^S DISEASE
     Dosage: UNK
     Dates: start: 20130222
  3. DAPSONE [Concomitant]
     Dosage: 100 MG, DAILY
     Route: 048
  4. ACYCLOVIR [Concomitant]
     Dosage: 400 MG, BID
     Route: 048
  5. LIPITOR [Concomitant]
     Dosage: 20 MG, UNK
     Route: 048
  6. ALEVE [Concomitant]
     Dosage: 220 MG, Q8H PRN

REACTIONS (2)
  - Pericardial effusion [Unknown]
  - Pneumonia [Unknown]
